FAERS Safety Report 13761415 (Version 1)
Quarter: 2017Q3

REPORT INFORMATION
  Report Type: Report from Study
  Country: US (occurrence: US)
  Receive Date: 20170717
  Receipt Date: 20170717
  Transmission Date: 20171127
  Serious: Yes (Death)
  Sender: FDA-Public Use
  Company Number: US-VIFOR (INTERNATIONAL) INC.-VIT-2017-07581

PATIENT
  Age: 66 Year
  Sex: Male

DRUGS (15)
  1. HYDROXYZINE HYDROCHLORIDE. [Concomitant]
     Active Substance: HYDROXYZINE HYDROCHLORIDE
  2. PROCRIT [Concomitant]
     Active Substance: ERYTHROPOIETIN
  3. PROTONIX [Concomitant]
     Active Substance: PANTOPRAZOLE SODIUM
  4. TAMSULOSIN [Concomitant]
     Active Substance: TAMSULOSIN
  5. TUMS [Concomitant]
     Active Substance: CALCIUM CARBONATE
  6. LACTULOSE. [Concomitant]
     Active Substance: LACTULOSE
  7. BARACLUDE [Concomitant]
     Active Substance: ENTECAVIR
  8. FERROUS SULFATE. [Concomitant]
     Active Substance: FERROUS SULFATE
  9. LASIX [Concomitant]
     Active Substance: FUROSEMIDE
  10. VITAMINS NOS [Concomitant]
     Active Substance: VITAMINS
  11. NOVOLIN [Concomitant]
     Active Substance: INSULIN HUMAN
  12. SENNOSIDES. [Concomitant]
     Active Substance: SENNOSIDES
  13. COLECALCIFEROL [Concomitant]
     Active Substance: CHOLECALCIFEROL
  14. VELTASSA [Suspect]
     Active Substance: PATIROMER
     Indication: HYPERKALAEMIA
     Route: 048
     Dates: start: 20170517
  15. LEVOTHYROXINE SODIUM. [Concomitant]
     Active Substance: LEVOTHYROXINE SODIUM

REACTIONS (1)
  - Death [Fatal]

NARRATIVE: CASE EVENT DATE: 20170626
